FAERS Safety Report 8500375-8 (Version None)
Quarter: 2012Q3

REPORT INFORMATION
  Report Type: 
  Country: None (occurrence: None)
  Receive Date: 20120710
  Receipt Date: 20120626
  Transmission Date: 20120928
  Serious: No
  Sender: FDA-Public Use
  Company Number: US-ASTRAZENECA-2012SE43170

PATIENT
  Age: 72 Year
  Sex: Female
  Weight: 68 kg

DRUGS (13)
  1. BRILINTA [Suspect]
     Indication: THROMBOSIS PROPHYLAXIS
     Route: 048
  2. ATORVASTATIN [Concomitant]
  3. METFORMIN HCL [Concomitant]
  4. METOPROLOL TARTRATE [Concomitant]
  5. JANUMET [Concomitant]
  6. LISINOPRIL AND HYDROCHLOROTHIAZIDE [Suspect]
     Route: 048
  7. BUSPIRONE HCL [Concomitant]
  8. AMLODIPINE [Concomitant]
  9. RANITIDINE [Concomitant]
  10. GLIPIZIDE [Concomitant]
  11. CLONIDINE [Concomitant]
  12. TRAMADOL HCL [Concomitant]
  13. GEMFIBROZIL [Concomitant]

REACTIONS (6)
  - WEIGHT DECREASED [None]
  - NAUSEA [None]
  - DYSPNOEA [None]
  - RASH [None]
  - EXERCISE TOLERANCE DECREASED [None]
  - ABDOMINAL PAIN UPPER [None]
